FAERS Safety Report 8999697 (Version 3)
Quarter: 2013Q1

REPORT INFORMATION
  Report Type: Spontaneous
  Country: US (occurrence: US)
  Receive Date: 20130102
  Receipt Date: 20130129
  Transmission Date: 20140127
  Serious: Yes (Other)
  Sender: FDA-Public Use
  Company Number: US-GLAXOSMITHKLINE-A1006542A

PATIENT
  Age: 66 Year
  Sex: Female

DRUGS (8)
  1. VOTRIENT [Suspect]
     Indication: RENAL CELL CARCINOMA
     Dosage: 800MG PER DAY
     Route: 048
     Dates: start: 20121023
  2. ZOFRAN [Concomitant]
  3. PREDNISONE [Concomitant]
  4. CLOTRIMAZOLE TROCHE [Concomitant]
  5. FLUCONAZOLE [Concomitant]
  6. CIPRODEX [Concomitant]
  7. VICODIN [Concomitant]
  8. LORAZEPAM [Concomitant]

REACTIONS (2)
  - Tumour haemorrhage [Unknown]
  - Blood pressure increased [Unknown]
